FAERS Safety Report 4755141-6 (Version None)
Quarter: 2005Q3

REPORT INFORMATION
  Report Type: 
  Country: None (occurrence: None)
  Receive Date: 20050829
  Receipt Date: 20050823
  Transmission Date: 20060218
  Serious: Yes (Other)
  Sender: FDA-Public Use
  Company Number: 2005UW12450

PATIENT
  Age: 72 Year
  Sex: Female

DRUGS (2)
  1. TAMOXIFEN CITRATE [Suspect]
     Route: 048
  2. FEMARA [Suspect]

REACTIONS (5)
  - BLINDNESS UNILATERAL [None]
  - DRY EYE [None]
  - DRY MOUTH [None]
  - RETINOSCHISIS [None]
  - SKIN ATROPHY [None]
